FAERS Safety Report 21447728 (Version 2)
Quarter: 2022Q4

REPORT INFORMATION
  Report Type: Spontaneous
  Country: FR (occurrence: FR)
  Receive Date: 20221012
  Receipt Date: 20221114
  Transmission Date: 20230113
  Serious: Yes (Death)
  Sender: FDA-Public Use
  Company Number: None

PATIENT
  Age: 87 Year
  Sex: Male
  Weight: 65 kg

DRUGS (1)
  1. KEYTRUDA [Suspect]
     Active Substance: PEMBROLIZUMAB
     Indication: Skin squamous cell carcinoma metastatic
     Dosage: 400 MILLIGRAM
     Route: 042
     Dates: start: 20220707, end: 20220707

REACTIONS (4)
  - Myocarditis [Fatal]
  - Myositis [Fatal]
  - Hepatic cytolysis [Fatal]
  - Lung disorder [Fatal]

NARRATIVE: CASE EVENT DATE: 20220727
